FAERS Safety Report 10700030 (Version 1)
Quarter: 2015Q1

REPORT INFORMATION
  Report Type: Spontaneous
  Country: US (occurrence: US)
  Receive Date: 20150109
  Receipt Date: 20150109
  Transmission Date: 20150721
  Serious: Yes (Other)
  Sender: FDA-Public Use
  Company Number: US-JNJFOC-20150101878

PATIENT
  Age: 45 Year
  Sex: Male
  Weight: 111.8 kg

DRUGS (26)
  1. PREDNISONE. [Concomitant]
     Active Substance: PREDNISONE
     Indication: SARCOIDOSIS
     Route: 065
     Dates: start: 2001
  2. NORTRIPTYLINE HCL [Concomitant]
     Active Substance: NORTRIPTYLINE HYDROCHLORIDE
     Indication: FIBROMYALGIA
     Route: 065
     Dates: start: 201111
  3. SINGULAIR [Concomitant]
     Active Substance: MONTELUKAST SODIUM
     Indication: ASTHMA
     Route: 065
     Dates: start: 2004
  4. ZETIA [Concomitant]
     Active Substance: EZETIMIBE
     Indication: DYSLIPIDAEMIA
     Route: 065
     Dates: start: 20141101
  5. TUSSIN DM [Concomitant]
     Active Substance: DEXTROMETHORPHAN HYDROBROMIDE\GUAIFENESIN
     Indication: COUGH
     Route: 065
     Dates: start: 20140904
  6. XARELTO [Suspect]
     Active Substance: RIVAROXABAN
     Indication: PULMONARY EMBOLISM
     Dates: start: 2013
  7. COMBIVENT [Concomitant]
     Active Substance: ALBUTEROL SULFATE\IPRATROPIUM BROMIDE
     Indication: SARCOIDOSIS
     Route: 065
     Dates: start: 2004
  8. FLUTICASONE PROPIONATE. [Concomitant]
     Active Substance: FLUTICASONE PROPIONATE
     Indication: SEASONAL ALLERGY
     Route: 065
     Dates: start: 2010
  9. LASIX [Concomitant]
     Active Substance: FUROSEMIDE
     Indication: CARDIAC FAILURE CONGESTIVE
     Route: 065
     Dates: start: 2009
  10. ROBAXIN [Concomitant]
     Active Substance: METHOCARBAMOL
     Indication: FIBROMYALGIA
     Route: 065
     Dates: start: 20140904
  11. ROXICODONE [Concomitant]
     Active Substance: OXYCODONE HYDROCHLORIDE
     Indication: ARTHRALGIA
     Route: 065
     Dates: start: 201311
  12. PROTONIX [Concomitant]
     Active Substance: PANTOPRAZOLE SODIUM
     Indication: GASTROOESOPHAGEAL REFLUX DISEASE
     Route: 065
     Dates: start: 20141101
  13. ZOFRAN [Concomitant]
     Active Substance: ONDANSETRON HYDROCHLORIDE
     Indication: VOMITING
     Route: 065
     Dates: start: 20140722, end: 20141105
  14. LEVEMIR [Concomitant]
     Active Substance: INSULIN DETEMIR
     Indication: HYPERGLYCAEMIA
     Route: 065
     Dates: start: 20141009
  15. NOVOLOG [Concomitant]
     Active Substance: INSULIN ASPART
     Indication: HYPERGLYCAEMIA
     Route: 065
     Dates: start: 20141008, end: 20141008
  16. OXYGEN. [Concomitant]
     Active Substance: OXYGEN
     Indication: SARCOIDOSIS
     Route: 065
     Dates: start: 2013
  17. LEVEMIR [Concomitant]
     Active Substance: INSULIN DETEMIR
     Indication: DIABETES MELLITUS
     Route: 065
     Dates: start: 20141009
  18. ASPIRIN. [Concomitant]
     Active Substance: ASPIRIN
     Indication: CARDIOVASCULAR EVENT PROPHYLAXIS
     Route: 065
     Dates: start: 2010
  19. VICTOZA [Concomitant]
     Active Substance: LIRAGLUTIDE
     Indication: HYPERGLYCAEMIA
     Route: 065
     Dates: start: 20141008, end: 20141008
  20. OLYSIO [Concomitant]
     Active Substance: SIMEPREVIR
     Indication: HEPATITIS C
     Route: 048
     Dates: start: 20140717, end: 20141008
  21. ZOFRAN [Concomitant]
     Active Substance: ONDANSETRON HYDROCHLORIDE
     Indication: NAUSEA
     Route: 065
     Dates: start: 20140722, end: 20141105
  22. XARELTO [Suspect]
     Active Substance: RIVAROXABAN
     Indication: THROMBOSIS PROPHYLAXIS
     Dates: start: 2013
  23. ATENOLOL. [Concomitant]
     Active Substance: ATENOLOL
     Indication: HYPERTENSION
     Route: 065
     Dates: start: 2012
  24. CLARITIN [Concomitant]
     Active Substance: LORATADINE
     Indication: SEASONAL ALLERGY
     Route: 065
     Dates: start: 2012
  25. VICTOZA [Concomitant]
     Active Substance: LIRAGLUTIDE
     Indication: HYPERGLYCAEMIA
     Route: 065
     Dates: start: 20141009
  26. COZAAR [Concomitant]
     Active Substance: LOSARTAN POTASSIUM
     Indication: HYPERTENSION
     Route: 065
     Dates: start: 20141003

REACTIONS (4)
  - Peripheral ischaemia [Recovered/Resolved]
  - Arterial thrombosis [Recovered/Resolved]
  - Blood testosterone decreased [Not Recovered/Not Resolved]
  - Polyuria [Recovered/Resolved]

NARRATIVE: CASE EVENT DATE: 20141008
